FAERS Safety Report 10895337 (Version 1)
Quarter: 2015Q1

REPORT INFORMATION
  Report Type: Spontaneous
  Country: US (occurrence: US)
  Receive Date: 20150306
  Receipt Date: 20150306
  Transmission Date: 20150721
  Serious: Yes (Other)
  Sender: FDA-Public Use
  Company Number: US-AMGEN-USASP2014037614

PATIENT
  Age: 72 Year
  Sex: Female

DRUGS (2)
  1. ENBREL [Suspect]
     Active Substance: ETANERCEPT
  2. ENBREL [Suspect]
     Active Substance: ETANERCEPT
     Indication: RHEUMATOID ARTHRITIS
     Dosage: 50 MG, QWK
     Route: 065
     Dates: start: 20131021

REACTIONS (12)
  - Mobility decreased [Not Recovered/Not Resolved]
  - Drug administration error [Recovered/Resolved]
  - Pain in extremity [Not Recovered/Not Resolved]
  - Hand deformity [Not Recovered/Not Resolved]
  - Bronchitis [Recovered/Resolved]
  - Injection site erythema [Not Recovered/Not Resolved]
  - Back pain [Not Recovered/Not Resolved]
  - Asthenia [Not Recovered/Not Resolved]
  - Arthralgia [Not Recovered/Not Resolved]
  - Muscular weakness [Not Recovered/Not Resolved]
  - Impaired work ability [Not Recovered/Not Resolved]
  - Injection site bruising [Recovered/Resolved]
